FAERS Safety Report 17327227 (Version 1)
Quarter: 2020Q1

REPORT INFORMATION
  Report Type: Spontaneous
  Country: US (occurrence: US)
  Receive Date: 20200127
  Receipt Date: 20200127
  Transmission Date: 20200409
  Serious: Yes (Hospitalization, Other)
  Sender: FDA-Public Use
  Company Number: US-ASTRAZENECA-2020SE10907

PATIENT
  Age: 74 Year
  Sex: Male

DRUGS (7)
  1. COREG [Concomitant]
     Active Substance: CARVEDILOL
  2. BRILINTA [Suspect]
     Active Substance: TICAGRELOR
     Indication: MYOCARDIAL INFARCTION
     Route: 048
     Dates: start: 201907, end: 20191127
  3. ASPIRIN. [Concomitant]
     Active Substance: ASPIRIN
     Dates: start: 201902
  4. ZETIA [Concomitant]
     Active Substance: EZETIMIBE
  5. LOSARTAN. [Concomitant]
     Active Substance: LOSARTAN
  6. GABAPENTIN. [Concomitant]
     Active Substance: GABAPENTIN
  7. BRILINTA [Suspect]
     Active Substance: TICAGRELOR
     Indication: MYOCARDIAL INFARCTION
     Route: 048
     Dates: start: 201902

REACTIONS (2)
  - Spinal cord haematoma [Recovering/Resolving]
  - Paralysis [Recovering/Resolving]

NARRATIVE: CASE EVENT DATE: 20191127
